FAERS Safety Report 9096484 (Version 2)
Quarter: 2013Q1

REPORT INFORMATION
  Report Type: Spontaneous
  Country: CA (occurrence: CA)
  Receive Date: 20130211
  Receipt Date: 20130314
  Transmission Date: 20140127
  Serious: Yes (Other)
  Sender: FDA-Public Use
  Company Number: PHHY2013CA011890

PATIENT
  Age: 50 Year
  Sex: Female

DRUGS (2)
  1. GLEEVEC [Suspect]
     Indication: GASTROINTESTINAL STROMAL TUMOUR
     Dosage: 400 MG, QD
     Route: 048
     Dates: start: 20130125
  2. GLEEVEC [Suspect]
     Dosage: UNK UKN, UNK

REACTIONS (7)
  - Chest discomfort [Unknown]
  - Palpitations [Unknown]
  - Discomfort [Recovering/Resolving]
  - Feeling abnormal [Recovering/Resolving]
  - Insomnia [Recovering/Resolving]
  - Nausea [Unknown]
  - Tremor [Recovering/Resolving]
